FAERS Safety Report 21743440 (Version 3)
Quarter: 2022Q4

REPORT INFORMATION
  Report Type: Report from Study
  Country: US (occurrence: US)
  Receive Date: 20221217
  Receipt Date: 20221222
  Transmission Date: 20230112
  Serious: No
  Sender: FDA-Public Use
  Company Number: US-ABBVIE-4240296

PATIENT
  Sex: Female

DRUGS (1)
  1. IMBRUVICA [Suspect]
     Active Substance: IBRUTINIB
     Indication: Chronic lymphocytic leukaemia
     Route: 048
     Dates: start: 20221130

REACTIONS (10)
  - Pain in jaw [Unknown]
  - Oedema peripheral [Not Recovered/Not Resolved]
  - White blood cell count abnormal [Unknown]
  - Tooth infection [Unknown]
  - Platelet disorder [Unknown]
  - Gingivitis [Not Recovered/Not Resolved]
  - Depression [Unknown]
  - Frustration tolerance decreased [Unknown]
  - Dental caries [Not Recovered/Not Resolved]
  - Fatigue [Unknown]
